FAERS Safety Report 19779505 (Version 5)
Quarter: 2022Q2

REPORT INFORMATION
  Report Type: Spontaneous
  Country: US (occurrence: US)
  Receive Date: 20210902
  Receipt Date: 20220526
  Transmission Date: 20220720
  Serious: No
  Sender: FDA-Public Use
  Company Number: US-PFIZER INC-202100994647

PATIENT
  Age: 61 Year
  Sex: Male

DRUGS (2)
  1. BOSULIF [Suspect]
     Active Substance: BOSUTINIB MONOHYDRATE
     Dosage: 100 MG, 3X/DAY
     Dates: start: 20200206
  2. BOSULIF [Suspect]
     Active Substance: BOSUTINIB MONOHYDRATE
     Dosage: 100 MG, 2X/DAY (PO BID/ TWICE A DAY ORALLY)
     Route: 048
     Dates: start: 20200206

REACTIONS (10)
  - Off label use [Unknown]
  - Constipation [Not Recovered/Not Resolved]
  - Neck pain [Not Recovered/Not Resolved]
  - Productive cough [Unknown]
  - Infection [Unknown]
  - Illness [Unknown]
  - Muscle spasms [Recovered/Resolved]
  - Hypoaesthesia [Unknown]
  - Arthralgia [Not Recovered/Not Resolved]
  - Arthralgia [Not Recovered/Not Resolved]

NARRATIVE: CASE EVENT DATE: 20211101
